FAERS Safety Report 4390769-7 (Version None)
Quarter: 2004Q3

REPORT INFORMATION
  Report Type: 
  Country: None (occurrence: None)
  Receive Date: 20040707
  Receipt Date: 20040629
  Transmission Date: 20050211
  Serious: Yes (Other)
  Sender: FDA-Public Use
  Company Number: US-MERCK-0406USA02738

PATIENT

DRUGS (1)
  1. INVANZ [Suspect]
     Indication: OSTEOMYELITIS
     Route: 065

REACTIONS (1)
  - BONE MARROW DEPRESSION [None]
